FAERS Safety Report 4645455-2 (Version None)
Quarter: 2005Q2

REPORT INFORMATION
  Report Type: 
  Country: None (occurrence: None)
  Receive Date: 20050426
  Receipt Date: 20041125
  Transmission Date: 20051028
  Serious: Yes (Hospitalization)
  Sender: FDA-Public Use
  Company Number: DE-MERCK-0412DEU00005

PATIENT
  Age: 55 Year
  Sex: Female
  Weight: 65 kg

DRUGS (14)
  1. VIOXX [Suspect]
     Indication: MUSCULOSKELETAL PAIN
     Route: 048
     Dates: start: 20030520, end: 20040301
  2. VIOXX [Suspect]
     Route: 048
     Dates: start: 20040301, end: 20040101
  3. VIOXX [Suspect]
     Route: 048
     Dates: start: 20040101, end: 20040930
  4. VIOXX [Suspect]
     Indication: ARTHROPATHY
     Route: 048
     Dates: start: 20030520, end: 20040301
  5. VIOXX [Suspect]
     Route: 048
     Dates: start: 20040301, end: 20040101
  6. VIOXX [Suspect]
     Route: 048
     Dates: start: 20040101, end: 20040930
  7. CANDESARTAN CILEXETIL [Concomitant]
     Indication: HYPERTENSION
     Route: 048
     Dates: start: 20001026
  8. [THERAPY UNSPECIFIED] [Concomitant]
     Route: 065
  9. [THERAPY UNSPECIFIED] [Concomitant]
     Route: 065
  10. [THERAPY UNSPECIFIED] [Concomitant]
     Route: 065
  11. RIZATRIPTAN BENZOATE [Concomitant]
     Indication: MIGRAINE
     Route: 048
     Dates: start: 19981106
  12. NALOXONE HYDROCHLORIDE AND TILIDINE HYDROCHLORIDE [Concomitant]
     Indication: PAIN
     Route: 048
     Dates: start: 20030522
  13. LEVOTHYROXINE SODIUM [Concomitant]
     Indication: THYROIDITIS
     Route: 048
     Dates: start: 20030605
  14. ESTRADIOL [Concomitant]
     Indication: MENOPAUSAL SYMPTOMS
     Route: 061
     Dates: start: 20040621, end: 20040909

REACTIONS (9)
  - AORTIC DILATATION [None]
  - BLOOD PRESSURE FLUCTUATION [None]
  - BLOOD PRESSURE INADEQUATELY CONTROLLED [None]
  - CONDITION AGGRAVATED [None]
  - DIZZINESS [None]
  - DYSPNOEA EXERTIONAL [None]
  - MITRAL VALVE INCOMPETENCE [None]
  - SPINAL OSTEOARTHRITIS [None]
  - TRICUSPID VALVE INCOMPETENCE [None]
